FAERS Safety Report 25689112 (Version 2)
Quarter: 2025Q3

REPORT INFORMATION
  Report Type: Report from Study
  Country: US (occurrence: US)
  Receive Date: 20250818
  Receipt Date: 20250926
  Transmission Date: 20251020
  Serious: Yes (Hospitalization)
  Sender: SUNOVION
  Company Number: US-SMPA-2025SPA010177

PATIENT
  Age: 91 Year
  Sex: Male

DRUGS (11)
  1. ORGOVYX [Suspect]
     Active Substance: RELUGOLIX
     Indication: Product used for unknown indication
     Route: 048
  2. ORGOVYX [Suspect]
     Active Substance: RELUGOLIX
     Route: 048
  3. ATORVASTATIN [Concomitant]
     Active Substance: ATORVASTATIN
  4. ASPIRIN [Concomitant]
     Active Substance: ASPIRIN
  5. FUROSEMIDE [Concomitant]
     Active Substance: FUROSEMIDE
  6. HYDROCODONE BITARTRATE [Concomitant]
     Active Substance: HYDROCODONE BITARTRATE
  7. LORAZEPAM [Concomitant]
     Active Substance: LORAZEPAM
  8. SENNA [Concomitant]
     Active Substance: SENNOSIDES
  9. VITAMIN B12 [Concomitant]
     Active Substance: CYANOCOBALAMIN
  10. POTASSIUM [Concomitant]
     Active Substance: POTASSIUM
  11. CARVEDILOL [Concomitant]
     Active Substance: CARVEDILOL

REACTIONS (2)
  - Gastrointestinal pain [Unknown]
  - Therapy interrupted [Recovered/Resolved]
